FAERS Safety Report 11335572 (Version 1)
Quarter: 2015Q3

REPORT INFORMATION
  Report Type: Report from Study
  Country: FR (occurrence: FR)
  Receive Date: 20150804
  Receipt Date: 20150804
  Transmission Date: 20151125
  Serious: Yes (Hospitalization)
  Sender: FDA-Public Use
  Company Number: FR-GLAXOSMITHKLINE-FR2015GSK111006

PATIENT
  Age: 64 Year
  Sex: Male

DRUGS (17)
  1. ATACAND [Concomitant]
     Active Substance: CANDESARTAN CILEXETIL
  2. CRESTOR [Concomitant]
     Active Substance: ROSUVASTATIN CALCIUM
  3. FLUOXETINE [Concomitant]
     Active Substance: FLUOXETINE\FLUOXETINE HYDROCHLORIDE
  4. FLUINDIONE [Concomitant]
     Active Substance: FLUINDIONE
  5. PRAVADUAL [Concomitant]
     Active Substance: ASPIRIN\PRAVASTATIN
  6. LYSANXIA [Concomitant]
     Active Substance: PRAZEPAM
  7. PLAVIX [Concomitant]
     Active Substance: CLOPIDOGREL BISULFATE
  8. INEXIUM [Concomitant]
     Active Substance: ESOMEPRAZOLE
  9. OMEGA-3-ACID ETHYL ESTERS. [Suspect]
     Active Substance: OMEGA-3-ACID ETHYL ESTERS
     Indication: ISCHAEMIC HEART DISEASE PROPHYLAXIS
     Dosage: UNK
     Dates: start: 20130911, end: 20141006
  10. OMIX [Concomitant]
     Active Substance: TAMSULOSIN HYDROCHLORIDE
  11. SOTALEX [Concomitant]
     Active Substance: SOTALOL
  12. PROCORALAN [Concomitant]
     Active Substance: IVABRADINE
  13. KARDEGIC [Concomitant]
     Active Substance: ASPIRIN LYSINE
  14. AMLOR [Concomitant]
     Active Substance: AMLODIPINE BESYLATE
  15. ADANCOR [Concomitant]
     Active Substance: NICORANDIL
  16. COVERSYL [Concomitant]
     Active Substance: PERINDOPRIL
  17. CREON [Concomitant]
     Active Substance: PANCRELIPASE AMYLASE\PANCRELIPASE LIPASE\PANCRELIPASE PROTEASE

REACTIONS (2)
  - Arteriogram coronary [Recovered/Resolved]
  - Chest pain [Recovered/Resolved]

NARRATIVE: CASE EVENT DATE: 20140817
